FAERS Safety Report 24885834 (Version 2)
Quarter: 2025Q1

REPORT INFORMATION
  Report Type: Spontaneous
  Country: FR (occurrence: FR)
  Receive Date: 20250125
  Receipt Date: 20250328
  Transmission Date: 20250408
  Serious: Yes (Other)
  Sender: ALEXION PHARMACEUTICALS
  Company Number: FR-AstraZeneca-CH-00788451A

PATIENT

DRUGS (2)
  1. TEZSPIRE [Suspect]
     Active Substance: TEZEPELUMAB-EKKO
     Dosage: 210 MILLIGRAM, Q4W
  2. TEZSPIRE [Suspect]
     Active Substance: TEZEPELUMAB-EKKO

REACTIONS (9)
  - Dyspnoea [Recovering/Resolving]
  - Cough [Recovering/Resolving]
  - Aphasia [Recovered/Resolved]
  - Arthralgia [Recovering/Resolving]
  - Oxygen saturation decreased [Unknown]
  - Hypersensitivity [Unknown]
  - Palpitations [Unknown]
  - Tremor [Unknown]
  - Night sweats [Unknown]
